FAERS Safety Report 9843191 (Version 1)
Quarter: 2013Q4

REPORT INFORMATION
  Report Type: Spontaneous
  Country: US (occurrence: None)
  Receive Date: 20131219
  Receipt Date: 20131219
  Transmission Date: 20140711
  Serious: Yes (Death)
  Sender: FDA-Public Use
  Company Number: 163-20785-13030315

PATIENT
  Age: 64 Year
  Sex: Female

DRUGS (12)
  1. THALOMID (THALIDOMIDE) (50 MILLIGRAM, CAPSULES) [Suspect]
     Indication: PLASMA CELL MYELOMA
     Route: 048
     Dates: start: 20110613
  2. ACIDOPHILUS (LACTOBACILLUS ACIDOPHILUS) [Concomitant]
  3. ALLEGRA [Concomitant]
  4. AMLODIPIN BESYLATE/BENAZEPRIL HYDROCHLORIDE (AMLODIPINE BESYLATE W/BENAZEPRIL HYDROCHLOR.) [Concomitant]
  5. DEXAMETHASONE (DEXAMETHASONE) [Concomitant]
  6. DIOVAN HCT (CO-DIOVAN) [Concomitant]
  7. FOLIC ACID (FOLIC ACID) [Concomitant]
  8. NEXIUM (ESOMERAZOLE) [Concomitant]
  9. NORVASC (AMLODIPINE BESILATE) [Concomitant]
  10. PROTON PUMP INHIBITORS (PROTON PUMP INHIBITORS) [Concomitant]
  11. PACKED CELL PLASMA (PLASMA) [Concomitant]
  12. PLATELETS (PLATELETS) [Concomitant]

REACTIONS (3)
  - Renal failure [None]
  - Gastrointestinal haemorrhage [None]
  - Cerebrovascular accident [None]
